FAERS Safety Report 4576224-X (Version None)
Quarter: 2005Q1

REPORT INFORMATION
  Report Type: 
  Country: None (occurrence: None)
  Receive Date: 20050207
  Receipt Date: 20050127
  Transmission Date: 20050727
  Serious: Yes (Death, Other)
  Sender: FDA-Public Use
  Company Number: 20040058USST

PATIENT
  Age: 42 Year
  Sex: Female

DRUGS (9)
  1. CARNITENE (L-CARNITINA) (LEVOCARNITINE INJECTION) [Suspect]
     Dosage: 2 G, IV
     Route: 042
     Dates: start: 20041119
  2. LANSOX (LANSOPRAZOLE) [Suspect]
     Indication: GASTROINTESTINAL HAEMORRHAGE
     Dosage: 30 MG/DAY PO
     Route: 048
     Dates: start: 20041120, end: 20041121
  3. MAALOX (MAGNESIUM HYDR., ALLUMINIUM HYDR.) [Concomitant]
  4. EUTIROX (THIROXINE) [Concomitant]
  5. NEBILOX (NEBIVOLOL CHLORID.) [Concomitant]
  6. EPREX (EPOETIN ALPHA) [Concomitant]
  7. RENAGEL (SELVELAMER) [Concomitant]
  8. SUCRALFIN (SUCRALPHATE) [Concomitant]
  9. CALCIJEX (CALCITHRIOLO) [Concomitant]

REACTIONS (2)
  - STEVENS-JOHNSON SYNDROME [None]
  - TOXIC EPIDERMAL NECROLYSIS [None]
